FAERS Safety Report 16255190 (Version 1)
Quarter: 2019Q2

REPORT INFORMATION
  Report Type: Spontaneous
  Country: US (occurrence: US)
  Receive Date: 20190430
  Receipt Date: 20190430
  Transmission Date: 20190711
  Serious: No
  Sender: FDA-Public Use
  Company Number: US-HTU-2019US018666

PATIENT
  Age: 74 Year
  Sex: Male

DRUGS (7)
  1. ASPIRIN EC [Concomitant]
     Active Substance: ASPIRIN
  2. TRIAMCINOLONE ACETONIDE. [Concomitant]
     Active Substance: TRIAMCINOLONE ACETONIDE
  3. VALCHLOR [Suspect]
     Active Substance: MECHLORETHAMINE
     Indication: NEOPLASM SKIN
     Dosage: UNK, THIN FILM DAILY
     Route: 061
     Dates: start: 20170602
  4. TAMSULOSIN [Concomitant]
     Active Substance: TAMSULOSIN
  5. PRAVASTATIN SODIUM. [Concomitant]
     Active Substance: PRAVASTATIN SODIUM
  6. MULTIVITAMINS                      /00116001/ [Concomitant]
     Active Substance: VITAMINS
  7. VALCHLOR [Suspect]
     Active Substance: MECHLORETHAMINE
     Indication: CUTANEOUS T-CELL LYMPHOMA
     Dosage: UNK, EVERY OTHER DAY
     Route: 061
     Dates: start: 20190312

REACTIONS (5)
  - Application site pruritus [Unknown]
  - Gait disturbance [Not Recovered/Not Resolved]
  - Application site swelling [Unknown]
  - Off label use [Unknown]
  - Blister [Not Recovered/Not Resolved]

NARRATIVE: CASE EVENT DATE: 20190303
